FAERS Safety Report 10103147 (Version 1)
Quarter: 2014Q2

REPORT INFORMATION
  Report Type: Spontaneous
  Country: US (occurrence: US)
  Receive Date: 20140424
  Receipt Date: 20140424
  Transmission Date: 20141212
  Serious: Yes (Hospitalization)
  Sender: FDA-Public Use
  Company Number: US-GLAXOSMITHKLINE-A1070647A

PATIENT
  Age: 70 Year
  Sex: Male

DRUGS (1)
  1. FLOVENT [Suspect]
     Indication: CHRONIC OBSTRUCTIVE PULMONARY DISEASE
     Dosage: 110MCG UNKNOWN
     Route: 055
     Dates: start: 20130715

REACTIONS (1)
  - Chronic obstructive pulmonary disease [Unknown]
